FAERS Safety Report 12293995 (Version 1)
Quarter: 2016Q2

REPORT INFORMATION
  Report Type: Spontaneous
  Country: US (occurrence: US)
  Receive Date: 20160422
  Receipt Date: 20160422
  Transmission Date: 20160815
  Serious: No
  Sender: FDA-Public Use
  Company Number: US-HOSPIRA-2982964

PATIENT
  Age: 38 Year
  Sex: Male
  Weight: 111.13 kg

DRUGS (5)
  1. QUELICIN [Suspect]
     Active Substance: SUCCINYLCHOLINE CHLORIDE
     Indication: NEUROMUSCULAR BLOCKING THERAPY
     Dosage: ONCE
     Route: 042
     Dates: start: 20150817, end: 20150817
  2. BREVITAL SODIUM [Concomitant]
     Active Substance: METHOHEXITAL SODIUM
     Indication: ANAESTHESIA PROCEDURE
     Dosage: ONCE
     Route: 042
     Dates: start: 20150819, end: 20150819
  3. TORADOL [Concomitant]
     Active Substance: KETOROLAC TROMETHAMINE
     Indication: PAIN
     Dosage: ONCE
     Route: 042
     Dates: start: 20150819, end: 20150819
  4. BREVITAL SODIUM [Concomitant]
     Active Substance: METHOHEXITAL SODIUM
     Indication: ANAESTHESIA PROCEDURE
     Dosage: ONCE
     Route: 042
     Dates: start: 20150819, end: 20150819
  5. TORADOL [Concomitant]
     Active Substance: KETOROLAC TROMETHAMINE
     Indication: PAIN
     Dosage: ONCE
     Route: 042
     Dates: start: 20150817, end: 20150817

REACTIONS (2)
  - Product quality issue [Recovered/Resolved]
  - Drug effect decreased [Recovered/Resolved]

NARRATIVE: CASE EVENT DATE: 20150817
